FAERS Safety Report 9539997 (Version 2)
Quarter: 2013Q3

REPORT INFORMATION
  Report Type: Report from Study
  Country: DE (occurrence: DE)
  Receive Date: 20130920
  Receipt Date: 20130920
  Transmission Date: 20140515
  Serious: Yes (Life-Threatening, Hospitalization, Disabling)
  Sender: FDA-Public Use
  Company Number: DE-SANOFI-AVENTIS-CLOF-1002669

PATIENT
  Age: 46 Year
  Sex: Female
  Weight: 71 kg

DRUGS (6)
  1. EVOLTRA [Suspect]
     Indication: ACUTE MYELOID LEUKAEMIA
     Dosage: 35 MG/M2, QD
     Route: 042
     Dates: start: 20130514, end: 20130518
  2. CYTARABINE [Suspect]
     Indication: ACUTE MYELOID LEUKAEMIA
     Dosage: 750 MG/M2, QD
     Route: 042
     Dates: start: 20130514, end: 20130518
  3. IDARUBICIN [Suspect]
     Indication: ACUTE MYELOID LEUKAEMIA
     Dosage: 7.5 MG/M2, QD
     Route: 042
     Dates: start: 20130514, end: 20130514
  4. IDARUBICIN [Suspect]
     Indication: ACUTE MYELOID LEUKAEMIA
     Dosage: 7.5 MG/M2, QD
     Route: 065
     Dates: start: 20130516, end: 20130516
  5. ACICLOVIR [Concomitant]
     Indication: PRODUCT USED FOR UNKNOWN INDICATION
     Dosage: 2250 MG, QD
     Route: 042
     Dates: start: 20130615, end: 20130619
  6. FLUCONAZOLE [Concomitant]
     Indication: PRODUCT USED FOR UNKNOWN INDICATION
     Dosage: 200 MG, QD
     Route: 042
     Dates: start: 20130605, end: 20130606

REACTIONS (5)
  - Sepsis [Recovered/Resolved]
  - International normalised ratio increased [Recovered/Resolved]
  - Hallucination [Recovered/Resolved]
  - Communication disorder [Recovered/Resolved]
  - Pneumonia [Recovered/Resolved]
